FAERS Safety Report 22708952 (Version 3)
Quarter: 2023Q4

REPORT INFORMATION
  Report Type: Report from Study
  Country: US (occurrence: US)
  Receive Date: 20230716
  Receipt Date: 20231005
  Transmission Date: 20240109
  Serious: Yes (Other)
  Sender: FDA-Public Use
  Company Number: US-ABBVIE-5328111

PATIENT
  Age: 42 Year
  Sex: Female

DRUGS (2)
  1. HUMIRA [Suspect]
     Active Substance: ADALIMUMAB
     Indication: Colitis ulcerative
     Dosage: FORM STRENGTH WAS 40 MILLIGRAM?CITRATE FREE
     Route: 058
     Dates: end: 202308
  2. HUMIRA [Suspect]
     Active Substance: ADALIMUMAB
     Indication: Rheumatoid arthritis

REACTIONS (16)
  - Systemic lupus erythematosus [Unknown]
  - Vomiting [Unknown]
  - Blood pressure decreased [Unknown]
  - Swelling face [Unknown]
  - Chills [Unknown]
  - Arthropathy [Unknown]
  - Pain [Unknown]
  - Gastrointestinal bacterial overgrowth [Unknown]
  - Gastrointestinal oedema [Unknown]
  - Colitis ulcerative [Unknown]
  - Oedema peripheral [Unknown]
  - Brain fog [Unknown]
  - Joint range of motion decreased [Unknown]
  - Malaise [Unknown]
  - Abdominal distension [Unknown]
  - Condition aggravated [Unknown]

NARRATIVE: CASE EVENT DATE: 20220401
